FAERS Safety Report 11507054 (Version 2)
Quarter: 2015Q3

REPORT INFORMATION
  Report Type: Report from Study
  Country: US (occurrence: US)
  Receive Date: 20150915
  Receipt Date: 20150923
  Transmission Date: 20151125
  Serious: Yes (Hospitalization)
  Sender: FDA-Public Use
  Company Number: US-BIOGENIDEC-2015BI125158

PATIENT
  Age: 47 Year
  Sex: Male

DRUGS (8)
  1. TEGRETOL [Concomitant]
     Active Substance: CARBAMAZEPINE
  2. VIAGRA [Concomitant]
     Active Substance: SILDENAFIL CITRATE
  3. KLONOPIN [Concomitant]
     Active Substance: CLONAZEPAM
  4. PROVIGIL [Concomitant]
     Active Substance: MODAFINIL
  5. ASPIRIN. [Concomitant]
     Active Substance: ASPIRIN
  6. TECFIDERA [Suspect]
     Active Substance: DIMETHYL FUMARATE
     Indication: MULTIPLE SCLEROSIS
     Route: 048
     Dates: start: 20150811, end: 20150820
  7. TECFIDERA [Suspect]
     Active Substance: DIMETHYL FUMARATE
     Indication: MULTIPLE SCLEROSIS
     Route: 048
     Dates: start: 20150821, end: 20150902
  8. LYRICA [Concomitant]
     Active Substance: PREGABALIN

REACTIONS (5)
  - Multiple sclerosis [Unknown]
  - Confusional state [Recovered/Resolved]
  - Asthenia [Recovered/Resolved]
  - Visual impairment [Recovered/Resolved]
  - Amnesia [Recovered/Resolved]

NARRATIVE: CASE EVENT DATE: 201508
